FAERS Safety Report 23230427 (Version 2)
Quarter: 2024Q3

REPORT INFORMATION
  Report Type: Report from Study
  Country: CA (occurrence: CA)
  Receive Date: 20231127
  Receipt Date: 20240826
  Transmission Date: 20241017
  Serious: Yes (Other)
  Sender: SANDOZ
  Company Number: CA-SANDOZ-SDZ2023CA020343

PATIENT
  Sex: Male

DRUGS (1)
  1. HYRIMOZ [Suspect]
     Active Substance: ADALIMUMAB-ADAZ
     Indication: Crohn^s disease
     Dosage: 40 MG;WEEKLY
     Route: 058
     Dates: start: 20230725

REACTIONS (5)
  - Crohn^s disease [Unknown]
  - Pneumonia [Recovered/Resolved]
  - Emphysema [Unknown]
  - Lip swelling [Recovered/Resolved]
  - Off label use [Unknown]
